FAERS Safety Report 9559480 (Version 1)
Quarter: 2013Q3

REPORT INFORMATION
  Report Type: Report from Study
  Country: CA (occurrence: CA)
  Receive Date: 20130927
  Receipt Date: 20130927
  Transmission Date: 20140515
  Serious: Yes (Other)
  Sender: FDA-Public Use
  Company Number: CA-JNJFOC-20130912298

PATIENT
  Sex: Male
  Weight: 79.5 kg

DRUGS (6)
  1. REMICADE [Suspect]
     Indication: CROHN^S DISEASE
     Route: 042
     Dates: start: 20130629
  2. ASA [Concomitant]
     Dosage: MG
     Route: 065
  3. CRESTOR [Concomitant]
     Dosage: MG
     Route: 065
  4. VIT D [Concomitant]
     Dosage: MG
     Route: 065
  5. PANTOLOC [Concomitant]
     Dosage: MG
     Route: 065
  6. PREDNISONE [Concomitant]
     Dosage: MG
     Route: 065

REACTIONS (5)
  - Blood iron decreased [Unknown]
  - Fatigue [Unknown]
  - Arthralgia [Unknown]
  - Headache [Unknown]
  - Listless [Unknown]
